FAERS Safety Report 9335796 (Version 1)
Quarter: 2013Q2

REPORT INFORMATION
  Report Type: Spontaneous
  Country: US (occurrence: US)
  Receive Date: 20130606
  Receipt Date: 20130606
  Transmission Date: 20140414
  Serious: No
  Sender: FDA-Public Use
  Company Number: US-AMGEN-USASP2013030288

PATIENT
  Age: 84 Year
  Sex: Female

DRUGS (8)
  1. PROLIA [Suspect]
     Indication: OSTEOPOROSIS POSTMENOPAUSAL
     Dosage: UNK
     Dates: start: 201111
  2. LIPITOR [Concomitant]
     Dosage: 20 MG, QD
  3. RAMIPRIL [Concomitant]
     Dosage: 2.5 MG, QD
  4. TIMOLOL [Concomitant]
  5. TRAVATAN Z [Concomitant]
  6. CALCIUM WITH VITAMIN D             /00944201/ [Concomitant]
     Dosage: 1200 MG, QD
  7. FOLIC ACID [Concomitant]
     Dosage: 1
  8. BIOTIN [Concomitant]
     Dosage: 1

REACTIONS (1)
  - Back pain [Unknown]
